FAERS Safety Report 12874616 (Version 1)
Quarter: 2016Q4

REPORT INFORMATION
  Report Type: Spontaneous
  Country: PL (occurrence: PL)
  Receive Date: 20161021
  Receipt Date: 20161021
  Transmission Date: 20170207
  Serious: Yes (Other)
  Sender: FDA-Public Use
  Company Number: PL-ALLERGAN-1673267US

PATIENT
  Age: 26 Year
  Sex: Female

DRUGS (1)
  1. LEVOSERT [Suspect]
     Active Substance: LEVONORGESTREL
     Indication: CONTRACEPTION
     Dosage: 52-MG-IUS
     Route: 015
     Dates: start: 20160902, end: 20161005

REACTIONS (4)
  - Vaginal haemorrhage [Unknown]
  - Abdominal pain [Unknown]
  - Chills [Unknown]
  - Malaise [Unknown]

NARRATIVE: CASE EVENT DATE: 20160928
